FAERS Safety Report 25222476 (Version 1)
Quarter: 2025Q2

REPORT INFORMATION
  Report Type: Spontaneous
  Country: US (occurrence: US)
  Receive Date: 20250421
  Receipt Date: 20250421
  Transmission Date: 20250717
  Serious: No
  Sender: SANOFI AVENTIS
  Company Number: US-SANOFI-02492300

PATIENT
  Age: 53 Year
  Sex: Female

DRUGS (2)
  1. DUPIXENT [Suspect]
     Active Substance: DUPILUMAB
     Indication: Dermatitis atopic
     Dates: start: 20250324, end: 20250324
  2. DUPIXENT [Suspect]
     Active Substance: DUPILUMAB
     Dates: start: 20250407, end: 202504

REACTIONS (4)
  - Lethargy [Unknown]
  - Pyrexia [Unknown]
  - Arthralgia [Unknown]
  - Serum sickness-like reaction [Unknown]

NARRATIVE: CASE EVENT DATE: 20250401
